FAERS Safety Report 8600948 (Version 2)
Quarter: 2012Q4

REPORT INFORMATION
  Report Type: 
  Country: US (occurrence: US)
  Receive Date: 20120606
  Receipt Date: 20121226
  Transmission Date: 20130627
  Serious: Yes (Congenital Anomaly, Other)
  Sender: FDA-Public Use
  Company Number: US-PFIZER INC-2012133908

PATIENT
  Age: 4 Year
  Sex: Female
  Weight: 2.92 kg

DRUGS (5)
  1. ZOLOFT [Suspect]
     Indication: DEPRESSION
     Dosage: 100 mg, 1x/day
     Route: 064
     Dates: start: 2001, end: 201211
  2. ZOLOFT [Suspect]
     Indication: PROPHYLAXIS
  3. SERTRALINE HCL [Suspect]
     Indication: DEPRESSION
     Dosage: 100 mg, 1x/day
     Route: 064
     Dates: start: 20060831
  4. SERTRALINE HCL [Suspect]
     Indication: PROPHYLAXIS
  5. PRENATAL VITAMINS [Concomitant]
     Dosage: UNK
     Route: 064

REACTIONS (5)
  - Maternal exposure during pregnancy [Unknown]
  - Congenital cardiovascular anomaly [Unknown]
  - Heart disease congenital [Unknown]
  - Bicuspid aortic valve [Unknown]
  - Arrhythmia [Unknown]
